FAERS Safety Report 5955974-4 (Version None)
Quarter: 2008Q4

REPORT INFORMATION
  Report Type: 
  Country: None (occurrence: None)
  Receive Date: 20081112
  Receipt Date: 20081027
  Transmission Date: 20090506
  Serious: Yes (Hospitalization)
  Sender: FDA-Public Use
  Company Number: 2008S1019375

PATIENT
  Age: 51 Year
  Sex: Female

DRUGS (5)
  1. METHOTREXATE [Suspect]
     Indication: STILL'S DISEASE ADULT ONSET
     Dosage: 6 MG; WEEKLY; 15 MG; WEEKLY
  2. INDOMETHACIN [Suspect]
     Indication: STILL'S DISEASE ADULT ONSET
     Dosage: 75 MG; DAILY
  3. PREDNISOLONE [Concomitant]
  4. METHYLPREDNISOLONE 16MG TAB [Concomitant]
  5. BETAMETHASONE [Concomitant]

REACTIONS (4)
  - CONDITION AGGRAVATED [None]
  - HEPATIC FAILURE [None]
  - HISTIOCYTOSIS HAEMATOPHAGIC [None]
  - STILL'S DISEASE ADULT ONSET [None]
